FAERS Safety Report 21169991 (Version 2)
Quarter: 2022Q3

REPORT INFORMATION
  Report Type: Report from Study
  Country: US (occurrence: US)
  Receive Date: 20220804
  Receipt Date: 20220809
  Transmission Date: 20221026
  Serious: Yes (Other)
  Sender: FDA-Public Use
  Company Number: US-ABBVIE-22K-163-4289218-00

PATIENT
  Sex: Male

DRUGS (4)
  1. SKYRIZI [Suspect]
     Active Substance: RISANKIZUMAB-RZAA
     Indication: Product used for unknown indication
     Dosage: 75MG/0.83ML
     Route: 058
  2. MODERNA COVID-19 VACCINE [Concomitant]
     Active Substance: ELASOMERAN
     Indication: COVID-19 immunisation
     Dosage: 1ST DOSE
     Route: 030
     Dates: start: 20210121, end: 20210121
  3. MODERNA COVID-19 VACCINE [Concomitant]
     Active Substance: ELASOMERAN
     Dosage: 2ND DOSE
     Route: 030
     Dates: start: 20210225, end: 20210225
  4. MODERNA COVID-19 VACCINE [Concomitant]
     Active Substance: ELASOMERAN
     Dosage: 3RD DOSE
     Route: 030
     Dates: start: 20220110, end: 20220110

REACTIONS (13)
  - Cardiac operation [Unknown]
  - Intentional self-injury [Unknown]
  - Skin exfoliation [Unknown]
  - Pruritus [Unknown]
  - Calcinosis [Unknown]
  - Excessive skin [Unknown]
  - Skin irritation [Unknown]
  - Gait disturbance [Unknown]
  - Wound haemorrhage [Unknown]
  - Auditory disorder [Unknown]
  - Skin erosion [Unknown]
  - Rash [Unknown]
  - Nail discolouration [Unknown]
